FAERS Safety Report 9466678 (Version 1)
Quarter: 2013Q3

REPORT INFORMATION
  Report Type: Spontaneous
  Country: US (occurrence: None)
  Receive Date: 20130816
  Receipt Date: 20130816
  Transmission Date: 20140515
  Serious: Yes (Other)
  Sender: FDA-Public Use
  Company Number: None

PATIENT
  Age: 79 Year
  Sex: Male

DRUGS (1)
  1. NIZORAL [Suspect]
     Indication: FUNGAL SKIN INFECTION
     Route: 061
     Dates: start: 20130624, end: 20130811

REACTIONS (4)
  - Application site pain [None]
  - Application site vesicles [None]
  - Pain [None]
  - Rash [None]
